FAERS Safety Report 9375708 (Version 1)
Quarter: 2013Q2

REPORT INFORMATION
  Report Type: Spontaneous
  Country: ES (occurrence: ES)
  Receive Date: 20130628
  Receipt Date: 20130628
  Transmission Date: 20140414
  Serious: Yes (Hospitalization)
  Sender: FDA-Public Use
  Company Number: PHHY2013ES066449

PATIENT
  Age: 70 Year
  Sex: Female

DRUGS (7)
  1. SINTROM [Suspect]
     Indication: ATRIAL FIBRILLATION
     Dosage: UNK UKN, UNK
     Route: 048
     Dates: end: 20130408
  2. DIGOXIN [Suspect]
     Indication: ATRIAL FIBRILLATION
     Dosage: 0.25 MG, QD
     Route: 048
  3. TORSEMIDE [Concomitant]
     Dosage: 10 MG, QD
  4. METFORMIN HYDROCHLORIDE W/VILDAGLIPTIN [Concomitant]
     Dosage: 1 DF, UKN(METF 850 MG, VILD 50 MG)
  5. GLIBENCLAMIDE [Concomitant]
     Dosage: 5 MG, Q12H
  6. RANITIDIN [Concomitant]
     Dosage: UNK UKN, UNK
  7. EPROSARTAN [Concomitant]
     Dosage: UNK UKN, UNK

REACTIONS (3)
  - Abdominal wall haematoma [Recovered/Resolved]
  - Abdominal wall haemorrhage [Unknown]
  - Abdominal pain [Unknown]
